FAERS Safety Report 7557717-X (Version None)
Quarter: 2011Q2

REPORT INFORMATION
  Report Type: 
  Country: None (occurrence: None)
  Receive Date: 20110620
  Receipt Date: 20110616
  Transmission Date: 20111010
  Serious: Yes (Life-Threatening, Hospitalization, Other)
  Sender: FDA-Public Use
  Company Number: JP-JNJFOC-20110500110

PATIENT
  Sex: Female
  Weight: 49 kg

DRUGS (8)
  1. FILGRASTIM [Suspect]
     Indication: NEUTROPENIA
     Dosage: PATIENT WAS GIVEN 3 CYCLES
     Route: 058
     Dates: start: 20110401, end: 20110406
  2. DOXIL [Suspect]
     Dosage: PATIENT WAS GIVEN 3 CYCLES
     Route: 042
     Dates: start: 20110114
  3. DOXIL [Suspect]
     Dosage: PATIENT WAS GIVEN 3 CYCLES
     Route: 042
     Dates: end: 20110318
  4. MUCOSTA [Concomitant]
     Route: 048
  5. DOXIL [Suspect]
     Indication: OVARIAN CANCER RECURRENT
     Route: 042
     Dates: start: 20110414
  6. DOXIL [Suspect]
     Dosage: PATIENT WAS GIVEN 3 CYCLES
     Route: 042
  7. MAGNESIUM OXIDE [Concomitant]
  8. DEPAS [Concomitant]
     Route: 048

REACTIONS (2)
  - WHITE BLOOD CELL COUNT DECREASED [None]
  - INTERSTITIAL LUNG DISEASE [None]
